FAERS Safety Report 18963303 (Version 2)
Quarter: 2021Q2

REPORT INFORMATION
  Report Type: Spontaneous
  Country: US (occurrence: US)
  Receive Date: 20210303
  Receipt Date: 20210413
  Transmission Date: 20210717
  Serious: No
  Sender: FDA-Public Use
  Company Number: US-ASTRAZENECA-2021A032527

PATIENT
  Age: 23683 Day
  Sex: Female
  Weight: 93.8 kg

DRUGS (1)
  1. BYDUREON [Suspect]
     Active Substance: EXENATIDE
     Indication: TYPE 2 DIABETES MELLITUS
     Route: 058
     Dates: start: 20210125

REACTIONS (6)
  - Confusional state [Unknown]
  - Injection site extravasation [Unknown]
  - Feeling abnormal [Unknown]
  - Device leakage [Unknown]
  - Injection site haemorrhage [Unknown]
  - Device use issue [Unknown]

NARRATIVE: CASE EVENT DATE: 20210201
